FAERS Safety Report 7722956-1 (Version None)
Quarter: 2011Q3

REPORT INFORMATION
  Report Type: 
  Country: None (occurrence: None)
  Receive Date: 20110825
  Receipt Date: 20110819
  Transmission Date: 20111222
  Serious: No
  Sender: FDA-Public Use
  Company Number: 15856446

PATIENT
  Age: 67 Year
  Sex: Male

DRUGS (4)
  1. WARFARIN SODIUM [Suspect]
     Indication: EMBOLISM
     Dosage: 4 MILLIGRAM 1 DAY
     Route: 048
     Dates: start: 20110617
  2. APIXABAN [Suspect]
     Indication: EMBOLISM
     Dosage: 10 MILLIGRAM 1 DAY
     Route: 048
     Dates: start: 20110617
  3. ENOXAPARIN SODIUM [Suspect]
     Indication: EMBOLISM
     Dosage: 1 DOSAGE FORM 1 DAY
     Route: 058
     Dates: start: 20110617, end: 20110623
  4. PLACEBO [Suspect]
     Indication: EMBOLISM
     Dosage: 1 DAY
     Route: 048
     Dates: start: 20110617

REACTIONS (1)
  - RENAL CANCER [None]
